FAERS Safety Report 10401185 (Version 2)
Quarter: 2014Q3

REPORT INFORMATION
  Report Type: Report from Study
  Country: US (occurrence: US)
  Receive Date: 20140822
  Receipt Date: 20140826
  Transmission Date: 20150326
  Serious: Yes (Other)
  Sender: FDA-Public Use
  Company Number: US-ROCHE-1452017

PATIENT
  Age: 60 Year
  Sex: Male

DRUGS (4)
  1. RITUXAN [Suspect]
     Active Substance: RITUXIMAB
     Indication: MICROSCOPIC POLYANGIITIS
     Dosage: SECOND INDUCTION TREATMENT
     Route: 042
  2. CELLCEPT [Suspect]
     Active Substance: MYCOPHENOLATE MOFETIL\MYCOPHENOLATE MOFETIL HYDROCHLORIDE
     Indication: GRANULOMATOSIS WITH POLYANGIITIS
  3. RITUXAN [Suspect]
     Active Substance: RITUXIMAB
     Indication: GRANULOMATOSIS WITH POLYANGIITIS
     Route: 042
  4. CELLCEPT [Suspect]
     Active Substance: MYCOPHENOLATE MOFETIL\MYCOPHENOLATE MOFETIL HYDROCHLORIDE
     Indication: MICROSCOPIC POLYANGIITIS
     Route: 065

REACTIONS (17)
  - Arthralgia [Unknown]
  - Haematuria [Unknown]
  - Glomerulonephritis [Unknown]
  - Haemoptysis [Unknown]
  - Hearing impaired [Unknown]
  - Microscopic polyangiitis [Unknown]
  - Skin ulcer [Unknown]
  - Night sweats [Unknown]
  - Weight decreased [Unknown]
  - Drug effect decreased [Unknown]
  - Granulomatosis with polyangiitis [Unknown]
  - Blood creatinine increased [Unknown]
  - Dialysis [Unknown]
  - Ear disorder [Unknown]
  - Proteinuria [Unknown]
  - Pleurisy [Unknown]
  - Rash [Unknown]
